FAERS Safety Report 13603978 (Version 2)
Quarter: 2017Q3

REPORT INFORMATION
  Report Type: Spontaneous
  Country: SE (occurrence: SE)
  Receive Date: 20170602
  Receipt Date: 20170711
  Transmission Date: 20171127
  Serious: Yes (Other)
  Sender: FDA-Public Use
  Company Number: SE-BAUSCH-BL-2017-016576

PATIENT
  Age: 39 Year
  Sex: Female

DRUGS (2)
  1. COLAZID [Suspect]
     Active Substance: BALSALAZIDE DISODIUM
     Indication: COLITIS ULCERATIVE
     Dosage: FOUR TABLETS PER DAY
     Route: 048
     Dates: start: 20170421, end: 20170424
  2. COLAZID [Suspect]
     Active Substance: BALSALAZIDE DISODIUM
     Dosage: TWO TABLETS PER DAY
     Route: 048
     Dates: start: 20170425, end: 20170510

REACTIONS (3)
  - Cough [Recovered/Resolved]
  - Rash [Unknown]
  - Toxic skin eruption [Unknown]
